FAERS Safety Report 12743544 (Version 3)
Quarter: 2016Q4

REPORT INFORMATION
  Report Type: Report from Study
  Country: None (occurrence: NL)
  Receive Date: 20160914
  Receipt Date: 20161019
  Transmission Date: 20170207
  Serious: Yes (Other)
  Sender: FDA-Public Use
  Company Number: NL-ABBVIE-16K-114-1723145-00

PATIENT
  Age: 74 Year
  Sex: Male

DRUGS (5)
  1. DUODOPA [Suspect]
     Active Substance: CARBIDOPA\LEVODOPA
     Dosage: CD 3.7ML
     Route: 050
  2. DUODOPA [Suspect]
     Active Substance: CARBIDOPA\LEVODOPA
     Dosage: MD: 9.0, CD: 4.0, ED: 1.0, CND: 2
     Route: 050
  3. DUODOPA [Suspect]
     Active Substance: CARBIDOPA\LEVODOPA
     Dosage: MD 9.0
     Route: 050
  4. SINEMET [Concomitant]
     Active Substance: CARBIDOPA\LEVODOPA
     Indication: PRODUCT USED FOR UNKNOWN INDICATION
     Route: 048
  5. DUODOPA [Suspect]
     Active Substance: CARBIDOPA\LEVODOPA
     Indication: PARKINSON^S DISEASE
     Dosage: MD 7.5, CD 4.0, ED 1.0
     Route: 050
     Dates: start: 20150914

REACTIONS (20)
  - Hyperhidrosis [Not Recovered/Not Resolved]
  - Muscle spasms [Recovered/Resolved]
  - Fibroma [Not Recovered/Not Resolved]
  - Dyskinesia [Not Recovered/Not Resolved]
  - Panic attack [Unknown]
  - Cataract [Not Recovered/Not Resolved]
  - Mobility decreased [Not Recovered/Not Resolved]
  - Nervousness [Not Recovered/Not Resolved]
  - Tremor [Not Recovered/Not Resolved]
  - Staphylococcal infection [Not Recovered/Not Resolved]
  - Musculoskeletal stiffness [Not Recovered/Not Resolved]
  - Restlessness [Not Recovered/Not Resolved]
  - Mobility decreased [Unknown]
  - Mobility decreased [Not Recovered/Not Resolved]
  - Tension [Not Recovered/Not Resolved]
  - Gaze palsy [Not Recovered/Not Resolved]
  - Stoma site irritation [Not Recovered/Not Resolved]
  - On and off phenomenon [Not Recovered/Not Resolved]
  - Dysphagia [Not Recovered/Not Resolved]
  - Confusional state [Unknown]

NARRATIVE: CASE EVENT DATE: 20160906
